FAERS Safety Report 13261129 (Version 1)
Quarter: 2017Q1

REPORT INFORMATION
  Report Type: Not Available
  Country: IN (occurrence: IN)
  Receive Date: 20170222
  Receipt Date: 20170222
  Transmission Date: 20170428
  Serious: Yes (Other)
  Sender: FDA-Public Use
  Company Number: IN-ANIPHARMA-2017-IN-000001

PATIENT
  Age: 30 Year
  Sex: Female

DRUGS (2)
  1. RISPERIDONE (NON-SPECIFIC) [Suspect]
     Active Substance: RISPERIDONE
     Dosage: TWO DOSES OF 4 MG EACH AT NIGHT
     Route: 065
  2. LITHIUM CARBONATE (NON-SPECIFIC) [Suspect]
     Active Substance: LITHIUM
     Route: 065

REACTIONS (3)
  - Hyperprolactinaemia [Unknown]
  - Hypothyroidism [Unknown]
  - Granuloma [Unknown]

NARRATIVE: CASE EVENT DATE: 201501
